FAERS Safety Report 9212438 (Version 1)
Quarter: 2013Q2

REPORT INFORMATION
  Report Type: Spontaneous
  Country: BR (occurrence: BR)
  Receive Date: 20130404
  Receipt Date: 20130404
  Transmission Date: 20140414
  Serious: Yes (Hospitalization, Other)
  Sender: FDA-Public Use
  Company Number: BR-009507513-1304BRA001592

PATIENT
  Age: 69 Year
  Sex: Male
  Weight: 72 kg

DRUGS (3)
  1. VICTRELIS [Suspect]
     Indication: HEPATITIS C
     Dosage: 800 MG, TID
     Route: 048
     Dates: start: 20130212, end: 20130312
  2. RIBAVIRIN [Concomitant]
     Indication: HEPATITIS C
     Dosage: 500 MG, BID
     Dates: start: 20130115, end: 20130312
  3. PEGASYS [Concomitant]
     Indication: HEPATITIS C
     Dosage: UNK
     Dates: start: 20130115, end: 20130312

REACTIONS (5)
  - Amyotrophic lateral sclerosis [Not Recovered/Not Resolved]
  - Respiratory failure [Not Recovered/Not Resolved]
  - Tracheostomy [Unknown]
  - Somnolence [Not Recovered/Not Resolved]
  - Fatigue [Not Recovered/Not Resolved]
